FAERS Safety Report 4477040-X (Version None)
Quarter: 2004Q4

REPORT INFORMATION
  Report Type: 
  Country: None (occurrence: None)
  Receive Date: 20041018
  Receipt Date: 20040220
  Transmission Date: 20050328
  Serious: Yes (Other)
  Sender: FDA-Public Use
  Company Number: BE-JNJFOC-20040200661

PATIENT
  Age: 51 Year
  Sex: Female

DRUGS (6)
  1. PROPULSID [Suspect]
     Route: 049
     Dates: start: 20030321, end: 20040123
  2. XANAX [Concomitant]
     Route: 049
  3. INDERAL [Concomitant]
     Indication: TACHYCARDIA
     Route: 049
  4. STILNOCT [Concomitant]
     Route: 049
  5. SEROXAT [Concomitant]
     Route: 049
  6. PARIET [Concomitant]
     Route: 049

REACTIONS (1)
  - ANGINA PECTORIS [None]
